FAERS Safety Report 18741172 (Version 4)
Quarter: 2021Q3

REPORT INFORMATION
  Report Type: Spontaneous
  Country: US (occurrence: US)
  Receive Date: 20210114
  Receipt Date: 20210811
  Transmission Date: 20211014
  Serious: No
  Sender: FDA-Public Use
  Company Number: US-GLAXOSMITHKLINE-US2021001143

PATIENT
  Sex: Female

DRUGS (3)
  1. FLONASE SENSIMIST ALLERGY RELIEF [Suspect]
     Active Substance: FLUTICASONE FUROATE
     Indication: HYPERSENSITIVITY
     Dosage: UNK, ONCE OR TWICE A DAY
     Dates: start: 20200813
  2. FLONASE SENSIMIST ALLERGY RELIEF [Suspect]
     Active Substance: FLUTICASONE FUROATE
     Indication: HYPERSENSITIVITY
     Dosage: UNK, ONCE OR TWICE A DAY
     Dates: start: 20201015
  3. FLONASE SENSIMIST ALLERGY RELIEF [Suspect]
     Active Substance: FLUTICASONE FUROATE
     Indication: HYPERSENSITIVITY
     Dosage: UNK

REACTIONS (11)
  - Emotional distress [Unknown]
  - Gait inability [Unknown]
  - Blood pressure increased [Unknown]
  - Mouth breathing [Unknown]
  - Insomnia [Unknown]
  - Product complaint [Unknown]
  - Concomitant disease aggravated [Recovered/Resolved]
  - Dyspnoea [Recovered/Resolved]
  - Anxiety [Unknown]
  - Chills [Unknown]
  - Drug ineffective [Unknown]

NARRATIVE: CASE EVENT DATE: 20201015
